FAERS Safety Report 11262889 (Version 1)
Quarter: 2015Q3

REPORT INFORMATION
  Report Type: Spontaneous
  Country: FR (occurrence: FR)
  Receive Date: 20150710
  Receipt Date: 20150710
  Transmission Date: 20151125
  Serious: Yes (Hospitalization)
  Sender: FDA-Public Use
  Company Number: FR-BAUSCH-BL-2015-016631

PATIENT
  Age: 76 Year
  Sex: Female

DRUGS (1)
  1. COLOKIT [Suspect]
     Active Substance: SODIUM PHOSPHATE, DIBASIC, ANHYDROUS\SODIUM PHOSPHATE, MONOBASIC, MONOHYDRATE
     Indication: BOWEL PREPARATION
     Dosage: TOTAL PHOSPHATE DOSE: 32.79 G?? (32 TABS)
     Route: 048

REACTIONS (6)
  - Altered state of consciousness [None]
  - Acute kidney injury [Recovered/Resolved]
  - Hyperphosphataemia [Recovered/Resolved]
  - Acute prerenal failure [None]
  - Hypercalcaemia [Recovered/Resolved]
  - Fatigue [None]
